FAERS Safety Report 4640757-8 (Version None)
Quarter: 2005Q1

REPORT INFORMATION
  Report Type: 
  Country: None (occurrence: None)
  Receive Date: 20050323
  Receipt Date: 20050310
  Transmission Date: 20050727
  Serious: Yes (Hospitalization)
  Sender: FDA-Public Use
  Company Number: 2005UW02670

PATIENT
  Age: 58 Year
  Sex: Male
  Weight: 83.007 kg

DRUGS (17)
  1. CRESTOR [Suspect]
     Indication: BLOOD CHOLESTEROL INCREASED
     Dosage: 10 MG DAILY
     Dates: start: 20040201, end: 20040201
  2. CRESTOR [Suspect]
     Indication: BLOOD TRIGLYCERIDES INCREASED
     Dosage: 10 MG DAILY
     Dates: start: 20040201, end: 20040201
  3. CRESTOR [Suspect]
     Indication: DYSLIPIDAEMIA
     Dosage: 10 MG DAILY
     Dates: start: 20040201, end: 20040201
  4. CRESTOR [Suspect]
     Indication: BLOOD CHOLESTEROL INCREASED
     Dosage: 20 MG DAILY PO
     Route: 048
     Dates: start: 20040216, end: 20040101
  5. CRESTOR [Suspect]
     Indication: BLOOD TRIGLYCERIDES INCREASED
     Dosage: 20 MG DAILY PO
     Route: 048
     Dates: start: 20040216, end: 20040101
  6. CRESTOR [Suspect]
     Indication: DYSLIPIDAEMIA
     Dosage: 20 MG DAILY PO
     Route: 048
     Dates: start: 20040216, end: 20040101
  7. CRESTOR [Suspect]
     Indication: BLOOD CHOLESTEROL INCREASED
     Dosage: 10 MG QD PO
     Route: 048
     Dates: start: 20040101, end: 20041101
  8. CRESTOR [Suspect]
     Indication: BLOOD TRIGLYCERIDES INCREASED
     Dosage: 10 MG QD PO
     Route: 048
     Dates: start: 20040101, end: 20041101
  9. CRESTOR [Suspect]
     Indication: DYSLIPIDAEMIA
     Dosage: 10 MG QD PO
     Route: 048
     Dates: start: 20040101, end: 20041101
  10. TRICOR [Concomitant]
  11. NORVASC [Concomitant]
  12. PLAVIX [Concomitant]
  13. ELAVIL [Concomitant]
  14. ASPIRIN [Concomitant]
  15. PHOSLO [Concomitant]
  16. LOPRESSOR [Concomitant]
  17. AVANDIA [Concomitant]

REACTIONS (2)
  - HYPOTHYROIDISM [None]
  - RHABDOMYOLYSIS [None]
